FAERS Safety Report 9773783 (Version 1)
Quarter: 2013Q4

REPORT INFORMATION
  Report Type: Spontaneous
  Country: US (occurrence: US)
  Receive Date: 20131219
  Receipt Date: 20131219
  Transmission Date: 20140711
  Serious: Yes (Disabling)
  Sender: FDA-Public Use
  Company Number: US-AMGEN-USASP2013088286

PATIENT
  Age: 69 Year
  Sex: Male
  Weight: 65.76 kg

DRUGS (1)
  1. ENBREL [Suspect]
     Indication: PRODUCT USED FOR UNKNOWN INDICATION
     Dosage: 25 MG, 2 TIMES/WK
     Route: 058
     Dates: start: 20101201

REACTIONS (2)
  - Headache [Recovered/Resolved with Sequelae]
  - Dry eye [Recovered/Resolved with Sequelae]
